FAERS Safety Report 7321023-9 (Version None)
Quarter: 2011Q1

REPORT INFORMATION
  Report Type: 
  Country: None (occurrence: None)
  Receive Date: 20110126
  Receipt Date: 20101209
  Transmission Date: 20110831
  Serious: Yes (Hospitalization)
  Sender: FDA-Public Use
  Company Number: A-US2010-42677

PATIENT
  Age: 48 Year
  Sex: Female

DRUGS (3)
  1. COUMADIN [Concomitant]
  2. EPOPROSTENOL SODIUM [Suspect]
     Indication: PULMONARY ARTERIAL HYPERTENSION
     Dosage: 38 NG, IV DRIP
     Route: 041
     Dates: start: 20100603
  3. AMBRISENTAN (AMBRISENTAN) [Concomitant]

REACTIONS (4)
  - ABDOMINAL DISTENSION [None]
  - ARTHRALGIA [None]
  - OEDEMA [None]
  - DIARRHOEA [None]
